FAERS Safety Report 13096008 (Version 6)
Quarter: 2017Q1

REPORT INFORMATION
  Report Type: Report from Study
  Country: CA (occurrence: CA)
  Receive Date: 20170109
  Receipt Date: 20170313
  Transmission Date: 20170428
  Serious: Yes (Hospitalization, Other)
  Sender: FDA-Public Use
  Company Number: CA-ROCHE-1876532

PATIENT
  Age: 56 Year
  Sex: Male

DRUGS (11)
  1. RITUXAN [Suspect]
     Active Substance: RITUXIMAB
     Indication: CENTRAL NERVOUS SYSTEM LYMPHOMA
  2. DEXAMETHASONE. [Concomitant]
     Active Substance: DEXAMETHASONE
  3. ONDANSETRON [Concomitant]
     Active Substance: ONDANSETRON
  4. KEPPRA [Concomitant]
     Active Substance: LEVETIRACETAM
  5. OLANZAPINE. [Concomitant]
     Active Substance: OLANZAPINE
  6. RITUXAN [Suspect]
     Active Substance: RITUXIMAB
     Indication: NON-HODGKIN^S LYMPHOMA
     Dosage: FOR 21 CYCLE
     Route: 042
     Dates: start: 20161220
  7. ACETAMINOPHEN. [Concomitant]
     Active Substance: ACETAMINOPHEN
     Indication: PREMEDICATION
     Route: 048
     Dates: start: 20161220
  8. RANITIDINE. [Concomitant]
     Active Substance: RANITIDINE
  9. DIPHENHYDRAMINE. [Concomitant]
     Active Substance: DIPHENHYDRAMINE
     Indication: PREMEDICATION
     Route: 048
     Dates: start: 20161220
  10. ATOVAQUONE. [Concomitant]
     Active Substance: ATOVAQUONE
  11. LEUCOVORIN. [Concomitant]
     Active Substance: LEUCOVORIN

REACTIONS (4)
  - Drug clearance decreased [Unknown]
  - Seizure [Recovering/Resolving]
  - Staphylococcal infection [Unknown]
  - Brain oedema [Unknown]

NARRATIVE: CASE EVENT DATE: 20161224
